FAERS Safety Report 17368543 (Version 1)
Quarter: 2020Q1

REPORT INFORMATION
  Report Type: Spontaneous
  Country: TH (occurrence: TH)
  Receive Date: 20200204
  Receipt Date: 20200204
  Transmission Date: 20200409
  Serious: Yes (Other)
  Sender: FDA-Public Use
  Company Number: NVSC2020TH022569

PATIENT
  Age: 26 Year
  Sex: Male

DRUGS (3)
  1. PROPRANOLOL [Concomitant]
     Active Substance: PROPRANOLOL HYDROCHLORIDE
     Indication: PRODUCT USED FOR UNKNOWN INDICATION
     Dosage: 10 MG
     Route: 065
     Dates: end: 20171025
  2. SANDOSTATIN [Suspect]
     Active Substance: OCTREOTIDE ACETATE
     Indication: PRODUCT USED FOR UNKNOWN INDICATION
     Dosage: 100 UG, QD
     Route: 058
     Dates: start: 20170220
  3. SANDOSTATIN LAR DEPOT [Suspect]
     Active Substance: OCTREOTIDE ACETATE
     Indication: PRODUCT USED FOR UNKNOWN INDICATION
     Dosage: 20 MG, Q4W
     Route: 030
     Dates: start: 20170927

REACTIONS (19)
  - Thyroxine free increased [Unknown]
  - Pituitary tumour [Unknown]
  - Diarrhoea [Unknown]
  - Palpitations [Unknown]
  - Blood testosterone decreased [Unknown]
  - Tri-iodothyronine free increased [Unknown]
  - Incorrect dose administered [Unknown]
  - Tremor [Unknown]
  - Hyperhidrosis [Unknown]
  - Hyperthyroidism [Unknown]
  - Blood thyroid stimulating hormone decreased [Unknown]
  - Blood thyroid stimulating hormone increased [Unknown]
  - Swelling [Unknown]
  - Weight increased [Unknown]
  - Diabetes insipidus [Unknown]
  - Blood pressure increased [Unknown]
  - Tri-iodothyronine free decreased [Unknown]
  - Weight decreased [Unknown]
  - Fatigue [Unknown]

NARRATIVE: CASE EVENT DATE: 20170224
